FAERS Safety Report 8351987-6 (Version None)
Quarter: 2012Q2

REPORT INFORMATION
  Report Type: 
  Country: None (occurrence: None)
  Receive Date: 20120510
  Receipt Date: 20120510
  Transmission Date: 20120825
  Serious: Yes (Disabling, Other)
  Sender: FDA-Public Use
  Company Number: None

PATIENT
  Age: 45 Year
  Sex: Female
  Weight: 59.4212 kg

DRUGS (2)
  1. LUPRON [Suspect]
     Indication: ENDOMETRIOSIS
     Dosage: INJECTION 1 TIME A MONTH IM
     Route: 030
     Dates: start: 20031126, end: 20040228
  2. LUPRON [Suspect]
     Indication: ENDOMETRIOSIS
     Dosage: INJECTION 1 TIME A MONTH IM
     Route: 030
     Dates: start: 20031028, end: 20041228

REACTIONS (2)
  - QUALITY OF LIFE DECREASED [None]
  - FIBROMYALGIA [None]
